FAERS Safety Report 7965795-9 (Version None)
Quarter: 2011Q4

REPORT INFORMATION
  Report Type: 
  Country: None (occurrence: None)
  Receive Date: 20111208
  Receipt Date: 20111202
  Transmission Date: 20120403
  Serious: Yes (Life-Threatening, Hospitalization)
  Sender: FDA-Public Use
  Company Number: IE-MEDIMMUNE-MEDI-0014051

PATIENT
  Sex: Female
  Weight: 2.7 kg

DRUGS (4)
  1. SYNAGIS [Suspect]
     Route: 030
  2. FERROUS SULFATE TAB [Concomitant]
  3. KAPSOVIT [Concomitant]
  4. SYNAGIS [Suspect]
     Route: 030
     Dates: start: 20111104, end: 20111202

REACTIONS (2)
  - OXYGEN SATURATION DECREASED [None]
  - APNOEA [None]
